FAERS Safety Report 4548974-2 (Version None)
Quarter: 2004Q4

REPORT INFORMATION
  Report Type: 
  Country: None (occurrence: None)
  Receive Date: 20041227
  Receipt Date: 20041014
  Transmission Date: 20050328
  Serious: No
  Sender: FDA-Public Use
  Company Number: 04P-163-0277489-00

PATIENT
  Age: 53 Year
  Sex: Female

DRUGS (7)
  1. HUMIRA [Suspect]
     Indication: PSORIATIC ARTHROPATHY
     Dosage: 40 MG, 1 N 2 WK, SUBCUTANEOUS
     Route: 058
     Dates: start: 20040901, end: 20041001
  2. METHROTREXATE SODIUM [Concomitant]
  3. VALSARTAN [Concomitant]
  4. ATENOLOL [Concomitant]
  5. PIOGLITAZONE [Concomitant]
  6. VYTORIN [Concomitant]
  7. FUROSEMIDE [Concomitant]

REACTIONS (1)
  - JOINT SWELLING [None]
